FAERS Safety Report 11633477 (Version 1)
Quarter: 2015Q4

REPORT INFORMATION
  Report Type: Spontaneous
  Country: BR (occurrence: BR)
  Receive Date: 20151015
  Receipt Date: 20151015
  Transmission Date: 20160304
  Serious: Yes (Hospitalization)
  Sender: FDA-Public Use
  Company Number: BR-B.I. PHARMACEUTICALS,INC./RIDGEFIELD-2015-BI-56023BR

PATIENT
  Age: 78 Year
  Sex: Female
  Weight: 60 kg

DRUGS (7)
  1. LEVOTIROXIN [Concomitant]
     Indication: PRODUCT USED FOR UNKNOWN INDICATION
     Dosage: 25 MCG
     Route: 065
  2. REPIRIDONE [Concomitant]
     Indication: PRODUCT USED FOR UNKNOWN INDICATION
     Route: 065
  3. LOSARTAN. [Concomitant]
     Active Substance: LOSARTAN
     Indication: PRODUCT USED FOR UNKNOWN INDICATION
     Route: 065
  4. PRADAXA [Suspect]
     Active Substance: DABIGATRAN ETEXILATE MESYLATE
     Indication: CEREBROVASCULAR ACCIDENT
     Dosage: 220 MG
     Route: 048
     Dates: start: 20150301, end: 20150801
  5. DILTIZEM [Concomitant]
     Indication: PRODUCT USED FOR UNKNOWN INDICATION
     Dosage: 60 MG
     Route: 065
  6. FUROSEMIDA [Concomitant]
     Active Substance: FUROSEMIDE
     Indication: PRODUCT USED FOR UNKNOWN INDICATION
     Dosage: 40 MG
     Route: 065
  7. ATENELOL [Concomitant]
     Active Substance: ATENOLOL
     Indication: PRODUCT USED FOR UNKNOWN INDICATION
     Dosage: 150 MG
     Route: 065

REACTIONS (7)
  - Gastrointestinal haemorrhage [Recovered/Resolved]
  - Hypovolaemic shock [Recovered/Resolved]
  - Cerebrovascular accident [Recovered/Resolved]
  - Blood disorder [Recovered/Resolved]
  - Hypotension [Recovered/Resolved]
  - Epistaxis [Recovered/Resolved]
  - Headache [Recovered/Resolved]

NARRATIVE: CASE EVENT DATE: 20150801
